FAERS Safety Report 25116462 (Version 1)
Quarter: 2025Q1

REPORT INFORMATION
  Report Type: Spontaneous
  Country: US (occurrence: US)
  Receive Date: 20250325
  Receipt Date: 20250325
  Transmission Date: 20250408
  Serious: Yes (Hospitalization)
  Sender: ORGANON
  Company Number: US-ORGANON-O2503USA001918

PATIENT
  Sex: Female

DRUGS (2)
  1. REMERON [Interacting]
     Active Substance: MIRTAZAPINE
  2. LENVIMA [Interacting]
     Active Substance: LENVATINIB
     Dates: end: 2025

REACTIONS (4)
  - Influenza [Unknown]
  - Heart rate irregular [Unknown]
  - Drug interaction [Unknown]
  - Dental operation [Unknown]

NARRATIVE: CASE EVENT DATE: 20250101
